FAERS Safety Report 19177632 (Version 1)
Quarter: 2021Q2

REPORT INFORMATION
  Report Type: Report from Study
  Country: JP (occurrence: JP)
  Receive Date: 20210426
  Receipt Date: 20210426
  Transmission Date: 20210717
  Serious: Yes (Hospitalization)
  Sender: FDA-Public Use
  Company Number: JP-SA-2021SA016135

PATIENT
  Sex: Male
  Weight: 68.8 kg

DRUGS (23)
  1. SULFASALAZINE. [Concomitant]
     Active Substance: SULFASALAZINE
     Indication: RHEUMATOID ARTHRITIS
     Dosage: 1000 MG, BID
     Route: 048
     Dates: start: 20201125
  2. PREDNISOLONE. [Concomitant]
     Active Substance: PREDNISOLONE
     Dosage: 5 MG, QD
     Route: 048
     Dates: start: 20200306, end: 20200326
  3. METHOTREXATE. [Concomitant]
     Active Substance: METHOTREXATE
     Dosage: 6 MG, QW
     Route: 048
     Dates: start: 20201107
  4. SARILUMAB [Suspect]
     Active Substance: SARILUMAB
     Indication: RHEUMATOID ARTHRITIS
     Dosage: UNK UNK, QOW
     Route: 058
     Dates: start: 20200618
  5. PREDNISOLONE. [Concomitant]
     Active Substance: PREDNISOLONE
     Dosage: 2 MG, QD
     Route: 048
     Dates: start: 20200716, end: 20200810
  6. PREDNISOLONE. [Concomitant]
     Active Substance: PREDNISOLONE
     Dosage: 8 MG, QD
     Route: 048
     Dates: start: 20200207, end: 20200220
  7. PREDNISOLONE. [Concomitant]
     Active Substance: PREDNISOLONE
     Dosage: 2 MG, QOD
     Route: 048
     Dates: start: 20200811, end: 20210106
  8. METHOTREXATE. [Concomitant]
     Active Substance: METHOTREXATE
     Dosage: 10 MG, BIW
     Route: 048
     Dates: start: 20200328, end: 20201101
  9. PREDNISOLONE. [Concomitant]
     Active Substance: PREDNISOLONE
     Dosage: 1 MG, QOD
     Route: 048
     Dates: start: 20210107
  10. CARERAM [Concomitant]
     Active Substance: IGURATIMOD
     Indication: RHEUMATOID ARTHRITIS
     Dosage: 25 MG, QD
     Route: 048
     Dates: start: 20200110, end: 20200220
  11. CARERAM [Concomitant]
     Active Substance: IGURATIMOD
     Dosage: 50 MG, BID
     Route: 048
     Dates: start: 20200221, end: 20201104
  12. SARILUMAB [Suspect]
     Active Substance: SARILUMAB
     Dosage: UNK UNK, 1X
     Route: 058
     Dates: start: 20200521, end: 20200521
  13. SARILUMAB [Suspect]
     Active Substance: SARILUMAB
     Dosage: UNK, QOW
     Route: 058
     Dates: start: 20200811
  14. METHOTREXATE. [Concomitant]
     Active Substance: METHOTREXATE
     Dosage: 6 MG, QW
     Route: 048
     Dates: start: 20200208, end: 20200215
  15. PREDNISOLONE. [Concomitant]
     Active Substance: PREDNISOLONE
     Indication: RHEUMATOID ARTHRITIS
     Dosage: 10 MG, QD
     Route: 048
     Dates: start: 20191125, end: 20200206
  16. SARILUMAB [Suspect]
     Active Substance: SARILUMAB
     Dosage: UNK UNK, 1X
     Route: 058
     Dates: start: 20200604, end: 20200604
  17. PREDNISOLONE. [Concomitant]
     Active Substance: PREDNISOLONE
     Dosage: 6 MG, QD
     Route: 048
     Dates: start: 20200221, end: 20200305
  18. PREDNISOLONE. [Concomitant]
     Active Substance: PREDNISOLONE
     Dosage: 3 MG, QD
     Route: 048
     Dates: start: 20200423, end: 20200715
  19. METHOTREXATE. [Concomitant]
     Active Substance: METHOTREXATE
     Indication: RHEUMATOID ARTHRITIS
     Dosage: 4 MG, QW
     Route: 048
     Dates: start: 20200125, end: 20200201
  20. SARILUMAB [Suspect]
     Active Substance: SARILUMAB
     Dosage: UNK, QOW
     Route: 058
     Dates: start: 20201029
  21. SARILUMAB [Suspect]
     Active Substance: SARILUMAB
     Dosage: UNK, QOW
     Route: 058
     Dates: start: 20210128
  22. PREDNISOLONE. [Concomitant]
     Active Substance: PREDNISOLONE
     Dosage: 4 MG, QD
     Route: 048
     Dates: start: 20200327, end: 20200422
  23. METHOTREXATE. [Concomitant]
     Active Substance: METHOTREXATE
     Dosage: 8 MG, QW
     Route: 048
     Dates: start: 20200222, end: 20200321

REACTIONS (4)
  - Pruritus [Not Recovered/Not Resolved]
  - Diarrhoea [Recovered/Resolved]
  - Diverticulitis [Recovered/Resolved]
  - Abdominal pain upper [Recovered/Resolved]

NARRATIVE: CASE EVENT DATE: 20200618
